FAERS Safety Report 6740115-6 (Version None)
Quarter: 2010Q2

REPORT INFORMATION
  Report Type: 
  Country: None (occurrence: None)
  Receive Date: 20100525
  Receipt Date: 20100517
  Transmission Date: 20101027
  Serious: Yes (Death, Hospitalization, Other)
  Sender: FDA-Public Use
  Company Number: GB-JNJFOC-20091200203

PATIENT
  Sex: Male

DRUGS (4)
  1. REMICADE [Suspect]
     Indication: CROHN'S DISEASE
     Dosage: WEEK 0
     Route: 042
  2. REMICADE [Suspect]
     Dosage: WEEK2
     Route: 042
  3. REMICADE [Suspect]
     Dosage: WEEK 6
     Route: 042
  4. REMICADE [Suspect]
     Dosage: DATES UNSPECIFIED
     Route: 042

REACTIONS (5)
  - CROHN'S DISEASE [None]
  - DEEP VEIN THROMBOSIS [None]
  - RENAL FAILURE [None]
  - SEPSIS [None]
  - TETANY [None]
